FAERS Safety Report 6340710-2 (Version None)
Quarter: 2009Q3

REPORT INFORMATION
  Report Type: 
  Country: None (occurrence: None)
  Receive Date: 20090904
  Receipt Date: 20090826
  Transmission Date: 20100115
  Serious: Yes (Other)
  Sender: FDA-Public Use
  Company Number: ES-ROCHE-652635

PATIENT
  Age: 13 Year
  Sex: Female

DRUGS (9)
  1. TAMIFLU [Suspect]
     Indication: INFLUENZA
     Route: 048
     Dates: start: 20090723, end: 20090724
  2. RINIALER [Suspect]
     Indication: INFLUENZA
     Route: 048
     Dates: start: 20090723
  3. TERMALGIN [Concomitant]
     Dates: start: 20081216
  4. AMOXICILINA [Concomitant]
     Indication: ACUTE SINUSITIS
     Dosage: DRUG REPORTED AS: AMOXICILINA NORMON
     Dates: start: 20090205
  5. OFTALMOWELL [Concomitant]
     Indication: ASTHMA
     Dates: start: 20090202
  6. BUDESONIDA [Concomitant]
     Indication: ASTHMA
     Dosage: DRUG: BUDESONIDA ALDOUNION
     Dates: start: 20081023
  7. SALBUTAMOL [Concomitant]
     Indication: ASTHMA
     Dosage: DRUG: SALBUTAMOL ALDOUNION
     Dates: start: 20080417
  8. XAZAL [Concomitant]
     Indication: ASTHMA
     Dates: start: 20080925
  9. AUGMENTIN [Concomitant]
     Indication: ACUTE SINUSITIS
     Dosage: DRUG REPORTED AS: AUGMENTINE
     Dates: start: 20080423

REACTIONS (1)
  - BRONCHOSPASM [None]
